FAERS Safety Report 6267753-1 (Version None)
Quarter: 2009Q3

REPORT INFORMATION
  Report Type: 
  Country: None (occurrence: None)
  Receive Date: 20090714
  Receipt Date: 20090704
  Transmission Date: 20100115
  Serious: Yes (Other)
  Sender: FDA-Public Use
  Company Number: CH-ROCHE-642297

PATIENT
  Sex: Male

DRUGS (1)
  1. CELLCEPT [Suspect]
     Indication: GRAFT VERSUS HOST DISEASE
     Route: 065
     Dates: start: 20050101

REACTIONS (1)
  - HYPERPARATHYROIDISM [None]
